FAERS Safety Report 7579989-8 (Version None)
Quarter: 2011Q2

REPORT INFORMATION
  Report Type: 
  Country: None (occurrence: None)
  Receive Date: 20110629
  Receipt Date: 20110622
  Transmission Date: 20111010
  Serious: Yes (Death)
  Sender: FDA-Public Use
  Company Number: GB-AMGEN-GBRCT2011023957

PATIENT
  Age: 71 Year
  Sex: Male

DRUGS (19)
  1. ALU-CAP [Concomitant]
  2. FUROSEMIDE [Concomitant]
     Dosage: 250 MG, QD
  3. SENNA [Concomitant]
  4. CINACALCET HYDROCHLORIDE [Suspect]
     Indication: HYPERPARATHYROIDISM SECONDARY
     Dosage: 90 MG, UNK
     Dates: start: 20070914, end: 20090520
  5. BISOPROLOL [Concomitant]
     Dosage: 1.25 MG, QD
  6. LEVEMIR [Concomitant]
  7. OMEPRAZOLE [Concomitant]
     Dosage: 20 MG, QD
     Route: 048
  8. BLINDED PLACEBO [Suspect]
     Indication: HYPERPARATHYROIDISM SECONDARY
     Dosage: 90 MG, UNK
     Dates: start: 20070914, end: 20090520
  9. ALFACALCIDOL [Concomitant]
     Dosage: 0.5 A?G, QD
  10. DIALYVITE [Concomitant]
     Dosage: UNK UNK, QD
  11. ALBUTEROL [Concomitant]
  12. ASPIRIN [Concomitant]
     Dosage: 75 MG, QD
  13. ATORVASTATIN [Concomitant]
     Dosage: 10 MG, QD
  14. NOVORAPID FLEXPEN [Concomitant]
  15. CALCIUM CARBONATE [Concomitant]
     Dosage: UNK UNK, TID
  16. NICORANDIL [Concomitant]
     Dosage: 10 MG, BID
  17. BECLOMETHASONE [Concomitant]
     Dosage: 100 A?G, UNK
  18. ISOSORBIDE MONONITRATE [Concomitant]
  19. PREGABALIN [Concomitant]
     Dosage: 25 MG, QD

REACTIONS (1)
  - MYOCARDIAL INFARCTION [None]
